FAERS Safety Report 6680333-9 (Version None)
Quarter: 2010Q2

REPORT INFORMATION
  Report Type: 
  Country: None (occurrence: None)
  Receive Date: 20100412
  Receipt Date: 20100407
  Transmission Date: 20101027
  Serious: Yes (Other)
  Sender: FDA-Public Use
  Company Number: 10-000486

PATIENT
  Age: 55 Year
  Sex: Female
  Weight: 68 kg

DRUGS (5)
  1. ESTRACE [Suspect]
     Indication: DYSPAREUNIA
     Dosage: 3-4 TIMES WEEKLY, VAGINAL
     Route: 067
     Dates: start: 19990101
  2. ESTRACE [Suspect]
     Indication: VULVOVAGINAL DRYNESS
     Dosage: 3-4 TIMES WEEKLY, VAGINAL
     Route: 067
     Dates: start: 19990101
  3. ZOLOFT [Concomitant]
  4. LEXAPRO [Concomitant]
  5. OXYCONTIN [Concomitant]

REACTIONS (11)
  - BALANCE DISORDER [None]
  - CEREBRAL DISORDER [None]
  - COMPLICATION OF DEVICE INSERTION [None]
  - CONCUSSION [None]
  - FATIGUE [None]
  - FIBROMYALGIA [None]
  - INFECTIOUS MONONUCLEOSIS [None]
  - LYME DISEASE [None]
  - PAIN [None]
  - SLEEP DISORDER [None]
  - VULVOVAGINAL PAIN [None]
